FAERS Safety Report 5083043-7 (Version None)
Quarter: 2006Q3

REPORT INFORMATION
  Report Type: 
  Country: None (occurrence: None)
  Receive Date: 20060814
  Receipt Date: 20060802
  Transmission Date: 20061208
  Serious: Yes (Other)
  Sender: FDA-Public Use
  Company Number: 2006095185

PATIENT
  Sex: Male

DRUGS (1)
  1. XALATAN [Suspect]
     Indication: GLAUCOMA
     Dosage: 40 GRAM, FREQUENCY: DAILY, OPHTHALMIC
     Route: 048

REACTIONS (1)
  - REACTION TO DRUG EXCIPIENTS [None]
